FAERS Safety Report 6087565-1 (Version None)
Quarter: 2009Q1

REPORT INFORMATION
  Report Type: 
  Country: None (occurrence: None)
  Receive Date: 20090223
  Receipt Date: 20090212
  Transmission Date: 20090719
  Serious: Yes (Hospitalization)
  Sender: FDA-Public Use
  Company Number: US-JNJFOC-20090203411

PATIENT
  Sex: Male
  Weight: 101 kg

DRUGS (10)
  1. DOXORUBICIN HCL [Suspect]
     Route: 042
  2. DOXORUBICIN HCL [Suspect]
     Indication: BURKITT'S LYMPHOMA
     Dosage: CYCLES 1-6
     Route: 042
  3. RITUXAN [Suspect]
     Route: 042
  4. RITUXAN [Suspect]
     Indication: BURKITT'S LYMPHOMA
     Route: 042
  5. CYCLOPHOSPHAMIDE [Suspect]
     Dosage: DAYS 2-5
     Route: 042
  6. CYCLOPHOSPHAMIDE [Suspect]
     Indication: BURKITT'S LYMPHOMA
     Route: 042
  7. VINCRISTINE [Suspect]
     Indication: BURKITT'S LYMPHOMA
     Route: 042
  8. CYTARABINE [Suspect]
     Route: 065
  9. CYTARABINE [Suspect]
     Indication: BURKITT'S LYMPHOMA
     Route: 065
  10. METHOTREXATE [Suspect]
     Indication: BURKITT'S LYMPHOMA
     Route: 042

REACTIONS (4)
  - BLOOD PHOSPHORUS DECREASED [None]
  - NEUTROPENIA [None]
  - PLATELET COUNT DECREASED [None]
  - PSEUDOMONAS INFECTION [None]
